FAERS Safety Report 21969003 (Version 1)
Quarter: 2023Q1

REPORT INFORMATION
  Report Type: Spontaneous
  Country: US (occurrence: US)
  Receive Date: 20230208
  Receipt Date: 20230208
  Transmission Date: 20230418
  Serious: No
  Sender: FDA-Public Use
  Company Number: US-BoehringerIngelheim-2023-BI-217369

PATIENT
  Age: 73 Year
  Sex: Male

DRUGS (2)
  1. COMBIVENT RESPIMAT [Suspect]
     Active Substance: ALBUTEROL SULFATE\IPRATROPIUM BROMIDE
     Indication: Lung disorder
     Dosage: ONE PUFF
     Dates: start: 202202
  2. COMBIVENT RESPIMAT [Suspect]
     Active Substance: ALBUTEROL SULFATE\IPRATROPIUM BROMIDE
     Indication: Respiration abnormal

REACTIONS (2)
  - Cholelithiasis [Unknown]
  - Hypoacusis [Unknown]

NARRATIVE: CASE EVENT DATE: 20221001
